FAERS Safety Report 8148999-4 (Version None)
Quarter: 2012Q1

REPORT INFORMATION
  Report Type: 
  Country: None (occurrence: None)
  Receive Date: 20120218
  Receipt Date: 20110815
  Transmission Date: 20120608
  Serious: No
  Sender: FDA-Public Use
  Company Number: US-ALLERGAN-1110949US

PATIENT
  Age: 68 Year
  Sex: Female

DRUGS (4)
  1. LANTUS [Concomitant]
     Indication: DIABETES MELLITUS
  2. AZOR [Concomitant]
     Indication: HYPERTENSION
  3. NOVOLOG [Concomitant]
     Indication: DIABETES MELLITUS
  4. BOTULINUM TOXIN TYPE A [Suspect]
     Indication: TORTICOLLIS
     Dosage: UNK
     Route: 030
     Dates: start: 20110612, end: 20110612

REACTIONS (4)
  - URTICARIA [None]
  - PRURITUS [None]
  - RASH [None]
  - PARAESTHESIA [None]
